FAERS Safety Report 6927715-5 (Version None)
Quarter: 2010Q3

REPORT INFORMATION
  Report Type: 
  Country: None (occurrence: None)
  Receive Date: 20100817
  Receipt Date: 20100809
  Transmission Date: 20110219
  Serious: Yes (Other)
  Sender: FDA-Public Use
  Company Number: PHHY2010US31329

PATIENT
  Sex: Male

DRUGS (2)
  1. EXTAVIA [Suspect]
     Indication: MULTIPLE SCLEROSIS
     Dosage: 0.25 MG, QOD
     Route: 058
     Dates: start: 20091229
  2. ANALGESICS [Concomitant]
     Dosage: UNK

REACTIONS (10)
  - DECREASED APPETITE [None]
  - DEPRESSED LEVEL OF CONSCIOUSNESS [None]
  - FATIGUE [None]
  - FEELING ABNORMAL [None]
  - HYPERTHERMIA [None]
  - MALAISE [None]
  - RESPIRATORY RATE DECREASED [None]
  - SWEAT GLAND DISORDER [None]
  - VITAL FUNCTIONS ABNORMAL [None]
  - WEIGHT DECREASED [None]
